FAERS Safety Report 4628742-3 (Version None)
Quarter: 2005Q1

REPORT INFORMATION
  Report Type: 
  Country: None (occurrence: None)
  Receive Date: 20050107
  Receipt Date: 20040916
  Transmission Date: 20050727
  Serious: No
  Sender: FDA-Public Use
  Company Number: 234725K04USA

PATIENT
  Age: 49 Year
  Sex: Male

DRUGS (1)
  1. REBIF [Suspect]
     Indication: MULTIPLE SCLEROSIS
     Dosage: 44 MCG, 3 IN 1 WEEKS
     Dates: start: 20040817

REACTIONS (3)
  - ASTHENIA [None]
  - INJECTION SITE IRRITATION [None]
  - INJECTION SITE REACTION [None]
